FAERS Safety Report 25866374 (Version 3)
Quarter: 2025Q4

REPORT INFORMATION
  Report Type: Spontaneous
  Country: EU (occurrence: EU)
  Receive Date: 20250930
  Receipt Date: 20251222
  Transmission Date: 20260118
  Serious: Yes (Hospitalization, Other)
  Sender: MERZ
  Company Number: EU-ACORDA THERAPEUTICS IRELAND LIMITED-ACO_177403_2025

PATIENT

DRUGS (18)
  1. INBRIJA [Suspect]
     Active Substance: LEVODOPA
     Indication: On and off phenomenon
     Dosage: 33 MILLIGRAM, PRN
     Dates: start: 2024
  2. INBRIJA [Suspect]
     Active Substance: LEVODOPA
     Indication: Parkinsonian crisis
  3. ROPINIROLE HYDROCHLORIDE [Suspect]
     Active Substance: ROPINIROLE HYDROCHLORIDE
     Indication: Product used for unknown indication
     Dosage: 8 MILLIGRAM
     Route: 065
  4. ROPINIROLE HYDROCHLORIDE [Suspect]
     Active Substance: ROPINIROLE HYDROCHLORIDE
     Dosage: 4 MILLIGRAM
     Route: 065
  5. DIOSMIN [Suspect]
     Active Substance: DIOSMIN
     Indication: Peripheral swelling
     Dosage: UNK
     Route: 065
  6. DIOSMIN [Suspect]
     Active Substance: DIOSMIN
     Indication: Abdominal discomfort
  7. CARBIDOPA\LEVODOPA [Suspect]
     Active Substance: CARBIDOPA\LEVODOPA
     Indication: Product used for unknown indication
     Dosage: UNK
     Route: 065
  8. CARBIDOPA\LEVODOPA [Suspect]
     Active Substance: CARBIDOPA\LEVODOPA
     Indication: Product used for unknown indication
     Dosage: 100 MILLIGRAM (12-15-18H AND BEFORE GOING TO SLEEP)
     Route: 065
  9. CARBIDOPA\LEVODOPA [Suspect]
     Active Substance: CARBIDOPA\LEVODOPA
     Dosage: RETARD, 25 MG BEFORE GOING TO SLEEP
     Route: 065
  10. BOTOX [Suspect]
     Active Substance: ONABOTULINUMTOXINA
     Indication: Product used for unknown indication
     Dosage: UNK
     Route: 065
  11. OMEPRAZOLE [Concomitant]
     Active Substance: OMEPRAZOLE
     Indication: Product used for unknown indication
     Dosage: UNK
     Route: 065
  12. VORTIOXETINE [Concomitant]
     Active Substance: VORTIOXETINE
     Indication: Product used for unknown indication
     Dosage: UNK
     Route: 065
  13. XADAGO [Concomitant]
     Active Substance: SAFINAMIDE MESYLATE
     Indication: Product used for unknown indication
     Dosage: UNK
     Route: 065
  14. RIVASTIGMINA [RIVASTIGMINE HYDROGEN TARTRATE] [Concomitant]
     Indication: Product used for unknown indication
     Dosage: PATCH/24HOURS
     Route: 065
  15. OPICAPONE [Concomitant]
     Active Substance: OPICAPONE
     Indication: Product used for unknown indication
     Dosage: 1HOUR AFTER SINEMET
     Route: 065
  16. RIVOTRIL [Concomitant]
     Active Substance: CLONAZEPAM
     Indication: Product used for unknown indication
     Dosage: 2 MILLIGRAM, AT NIGHT
     Route: 065
  17. PENTOSAN POLYSULFATE SODIUM [Concomitant]
     Active Substance: PENTOSAN POLYSULFATE SODIUM
     Indication: Product used for unknown indication
     Dosage: UNK
     Route: 065
  18. BRINTELLIX [Concomitant]
     Active Substance: VORTIOXETINE HYDROBROMIDE
     Indication: Feeling of relaxation
     Dosage: AT MORNING
     Route: 065

REACTIONS (54)
  - Angina pectoris [Recovered/Resolved]
  - Loss of consciousness [Recovered/Resolved]
  - Hemiparesis [Recovered/Resolved]
  - Foreign body in throat [Unknown]
  - Traumatic haematoma [Unknown]
  - Open globe injury [Recovering/Resolving]
  - Choking [Unknown]
  - Parkinson^s disease [Unknown]
  - Suffocation feeling [Not Recovered/Not Resolved]
  - Dry throat [Unknown]
  - Peripheral swelling [Unknown]
  - Condition aggravated [Unknown]
  - Haematoma [Unknown]
  - Tinnitus [Unknown]
  - Contusion [Not Recovered/Not Resolved]
  - Cerumen impaction [Unknown]
  - Feeling abnormal [Unknown]
  - Depressed mood [Unknown]
  - Joint dislocation [Not Recovered/Not Resolved]
  - Frequent bowel movements [Unknown]
  - Bladder sphincter atony [Recovered/Resolved]
  - Wound infection [Not Recovered/Not Resolved]
  - Dental restoration failure [Unknown]
  - Abdominal pain upper [Unknown]
  - Micturition urgency [Unknown]
  - Aversion [Unknown]
  - Excessive cerumen production [Recovered/Resolved]
  - Buttock injury [Unknown]
  - Pain in jaw [Unknown]
  - Limb injury [Unknown]
  - Salivary hypersecretion [Unknown]
  - Saliva discolouration [Unknown]
  - Tachycardia [Unknown]
  - Choking sensation [Not Recovered/Not Resolved]
  - Cough [Not Recovered/Not Resolved]
  - Weight decreased [Not Recovered/Not Resolved]
  - Fatigue [Unknown]
  - Headache [Not Recovered/Not Resolved]
  - Nausea [Not Recovered/Not Resolved]
  - Sputum discoloured [Not Recovered/Not Resolved]
  - Decreased appetite [Unknown]
  - Fall [Not Recovered/Not Resolved]
  - Fall [Unknown]
  - Fall [Unknown]
  - Treatment noncompliance [Unknown]
  - Wrong technique in device usage process [Unknown]
  - Incorrect route of product administration [Unknown]
  - Expulsion of medication [Not Recovered/Not Resolved]
  - Intentional underdose [Not Recovered/Not Resolved]
  - Device use issue [Unknown]
  - Product residue present [Not Recovered/Not Resolved]
  - Drug effect less than expected [Unknown]
  - Product colour issue [Unknown]
  - Product cleaning inadequate [Unknown]

NARRATIVE: CASE EVENT DATE: 20240101
